FAERS Safety Report 24527407 (Version 2)
Quarter: 2024Q4

REPORT INFORMATION
  Report Type: Report from Study
  Country: US (occurrence: US)
  Receive Date: 20241021
  Receipt Date: 20241101
  Transmission Date: 20250115
  Serious: Yes (Other)
  Sender: HELSINN HEALTHCARE
  Company Number: US-HBP-2024US030906

PATIENT
  Sex: Female

DRUGS (4)
  1. VALCHLOR [Suspect]
     Active Substance: MECHLORETHAMINE
     Indication: Cutaneous T-cell lymphoma
     Dosage: THIN FILM, 3/WEEK
     Route: 061
     Dates: start: 20240209, end: 202405
  2. VALCHLOR [Suspect]
     Active Substance: MECHLORETHAMINE
     Dosage: UNK, 3/WEEK
     Route: 061
     Dates: start: 202408, end: 202408
  3. GLUCOSAMINE + CHONDORITIN [Concomitant]
     Dosage: UNK, UNKNOWN
  4. VITAMINS [Concomitant]
     Active Substance: VITAMINS
     Dosage: UNK, UNKNOWN

REACTIONS (10)
  - Cutaneous T-cell lymphoma [Recovered/Resolved]
  - Cutaneous T-cell lymphoma recurrent [Recovered/Resolved]
  - Skin lesion [Recovered/Resolved]
  - Application site hypertrophy [Recovered/Resolved]
  - Off label use [Unknown]
  - Circumstance or information capable of leading to medication error [Unknown]
  - Expired product administered [Unknown]
  - Application site pruritus [Recovered/Resolved]
  - Application site erythema [Recovered/Resolved]
  - Pruritus [Recovered/Resolved]

NARRATIVE: CASE EVENT DATE: 20240101
